FAERS Safety Report 8436363 (Version 5)
Quarter: 2013Q3

REPORT INFORMATION
  Report Type: Report from Study
  Country: US (occurrence: US)
  Receive Date: 20120301
  Receipt Date: 20130823
  Transmission Date: 20140515
  Serious: Yes (Hospitalization)
  Sender: FDA-Public Use
  Company Number: US-ABBOTT-12P-163-0908675-00

PATIENT
  Age: 44 Year
  Sex: Female
  Weight: 72.64 kg

DRUGS (17)
  1. HUMIRA [Suspect]
     Indication: CROHN^S DISEASE
     Route: 058
     Dates: start: 20111128, end: 20111128
  2. HUMIRA [Suspect]
     Route: 058
     Dates: start: 20111212, end: 20111212
  3. HUMIRA [Suspect]
     Route: 058
     Dates: start: 20111226
  4. HUMIRA [Suspect]
     Route: 058
  5. CLINDAMYCIN [Suspect]
     Indication: INFECTION
     Dates: start: 20130603
  6. ALLEGRA [Concomitant]
     Indication: SEASONAL ALLERGY
  7. PRILOSEC [Concomitant]
     Indication: CROHN^S DISEASE
     Dosage: 20MG DAILY PRN, ABOUT EVERY OTHER DAY
  8. LORTAB [Concomitant]
     Indication: PAIN
  9. CALCIUM +D [Concomitant]
     Indication: MINERAL SUPPLEMENTATION
  10. IMURAN [Concomitant]
     Indication: CROHN^S DISEASE
     Dates: start: 20120313
  11. WELLBUTRIN [Concomitant]
     Indication: DEPRESSION
  12. MIRALAX [Concomitant]
     Indication: CONSTIPATION
  13. LOMOTIL [Concomitant]
     Indication: CROHN^S DISEASE
  14. HYDROCODONE [Concomitant]
     Indication: PRODUCT USED FOR UNKNOWN INDICATION
  15. LORTAB [Concomitant]
     Indication: PRODUCT USED FOR UNKNOWN INDICATION
  16. PREMARIN [Concomitant]
     Indication: HORMONE REPLACEMENT THERAPY
  17. ANALPRAM E [Concomitant]
     Indication: CROHN^S DISEASE

REACTIONS (19)
  - Colitis [Not Recovered/Not Resolved]
  - Haematochezia [Not Recovered/Not Resolved]
  - Abdominal pain [Recovered/Resolved]
  - Diarrhoea [Not Recovered/Not Resolved]
  - Dehydration [Recovered/Resolved]
  - Crohn^s disease [Recovered/Resolved]
  - Muscle spasms [Not Recovered/Not Resolved]
  - Anxiety [Not Recovered/Not Resolved]
  - Premature menopause [Unknown]
  - Menorrhagia [Not Recovered/Not Resolved]
  - Subcutaneous abscess [Recovered/Resolved]
  - Abscess [Not Recovered/Not Resolved]
  - Adverse drug reaction [Not Recovered/Not Resolved]
  - Malaise [Not Recovered/Not Resolved]
  - Dyspnoea [Not Recovered/Not Resolved]
  - Dyspepsia [Not Recovered/Not Resolved]
  - Diarrhoea [Not Recovered/Not Resolved]
  - Oropharyngeal pain [Recovering/Resolving]
  - Lymphangitis [Recovering/Resolving]
